FAERS Safety Report 5611235-4 (Version None)
Quarter: 2008Q1

REPORT INFORMATION
  Report Type: 
  Country: None (occurrence: None)
  Receive Date: 20080201
  Receipt Date: 20080125
  Transmission Date: 20080703
  Serious: Yes (Hospitalization)
  Sender: FDA-Public Use
  Company Number: NL-WYE-G00962208

PATIENT
  Age: 15 Year
  Sex: Female

DRUGS (1)
  1. LOVETTE-21 [Suspect]
     Indication: AMENORRHOEA
     Dates: start: 20071024, end: 20071101

REACTIONS (4)
  - ANXIETY [None]
  - APHASIA [None]
  - CEREBROVASCULAR ACCIDENT [None]
  - MOTOR DYSFUNCTION [None]
